FAERS Safety Report 5714156-1 (Version None)
Quarter: 2008Q2

REPORT INFORMATION
  Report Type: 
  Country: None (occurrence: None)
  Receive Date: 20080423
  Receipt Date: 20070413
  Transmission Date: 20081010
  Serious: No
  Sender: FDA-Public Use
  Company Number: US-KINGPHARMUSA00001-K200700479

PATIENT

DRUGS (13)
  1. SKELAXIN [Suspect]
     Indication: MUSCLE SPASMS
     Dosage: 800 MG, TID
     Route: 048
  2. NEXIUM [Concomitant]
     Dosage: 40 MG, QD
     Route: 048
  3. ACTONEL [Concomitant]
     Dosage: 35 MG, QW
     Route: 048
  4. DARVOCET  /00758701/ [Concomitant]
     Indication: PAIN
     Dosage: UNK, PRN
     Route: 048
  5. MULTIVITAMIN                       /00831701/ [Concomitant]
     Indication: VITAMIN SUPPLEMENTATION
     Dosage: UNK, QD
     Route: 048
  6. FLAXSEED OIL [Concomitant]
     Indication: VITAMIN SUPPLEMENTATION
     Dosage: 1000 MG, QD
     Route: 048
  7. COENZYME Q10  /00517201/ [Concomitant]
     Indication: VITAMIN SUPPLEMENTATION
     Dosage: 50 MG, QD
  8. GLUCOSAMINE W/CHONDROITIN SULFATE [Concomitant]
     Indication: VITAMIN SUPPLEMENTATION
     Dosage: 750MG/600MG, QD
  9. CALCIUM WITH VITAMIN D             /01233101/ [Concomitant]
     Indication: VITAMIN SUPPLEMENTATION
     Dosage: 600 MG, QD
  10. VITAMIN B COMPLEX  /00003501/ [Concomitant]
     Indication: VITAMIN SUPPLEMENTATION
     Dosage: UNK, QD
  11. VITAMIN B12  /00056201/ [Concomitant]
     Indication: VITAMIN SUPPLEMENTATION
     Dosage: 1000 MG, QD
  12. ESTER-C  /00968001/ [Concomitant]
     Indication: VITAMIN SUPPLEMENTATION
     Dosage: 500 MG, QD
  13. TYLENOL (CAPLET) [Concomitant]
     Dosage: UNK, UNK

REACTIONS (3)
  - ACCIDENTAL OVERDOSE [None]
  - CHOKING SENSATION [None]
  - INCORRECT DOSE ADMINISTERED [None]
